FAERS Safety Report 6186975-1 (Version None)
Quarter: 2009Q2

REPORT INFORMATION
  Report Type: 
  Country: None (occurrence: None)
  Receive Date: 20090508
  Receipt Date: 20090508
  Transmission Date: 20091009
  Serious: No
  Sender: FDA-Public Use
  Company Number: None

PATIENT
  Age: 45 Year
  Sex: Female
  Weight: 99.7913 kg

DRUGS (2)
  1. AVELOX [Suspect]
     Indication: PNEUMONIA PRIMARY ATYPICAL
     Dosage: 1 DAILY PO
     Route: 048
     Dates: start: 20090429, end: 20090503
  2. AUGMENTIN '125' [Concomitant]

REACTIONS (6)
  - DRUG INEFFECTIVE [None]
  - PAIN IN EXTREMITY [None]
  - RASH PAPULAR [None]
  - SWELLING [None]
  - TENDON DISORDER [None]
  - TENDON PAIN [None]
